FAERS Safety Report 5646370-8 (Version None)
Quarter: 2008Q1

REPORT INFORMATION
  Report Type: 
  Country: None (occurrence: None)
  Receive Date: 20080227
  Receipt Date: 20080227
  Transmission Date: 20080703
  Serious: Yes (Other)
  Sender: FDA-Public Use
  Company Number: None

PATIENT
  Age: 15 Year
  Sex: Female
  Weight: 47.6277 kg

DRUGS (1)
  1. ADVAIR DISKUS 250/50 [Suspect]
     Indication: ASTHMA
     Dosage: 250 MCG ONCE A DAY INHAL
     Route: 055
     Dates: start: 20050101, end: 20080117

REACTIONS (2)
  - FUNGAL INFECTION [None]
  - OESOPHAGEAL INFECTION [None]
